FAERS Safety Report 4431949-1 (Version None)
Quarter: 2004Q3

REPORT INFORMATION
  Report Type: 
  Country: None (occurrence: None)
  Receive Date: 20040824
  Receipt Date: 20040811
  Transmission Date: 20050211
  Serious: Yes (Hospitalization)
  Sender: FDA-Public Use
  Company Number: 2004UW08169

PATIENT
  Age: 51 Year
  Sex: Female

DRUGS (2)
  1. CRESTOR [Suspect]
     Indication: HYPERLIPIDAEMIA
     Dosage: 10 MG PO
     Route: 048
     Dates: start: 20040201
  2. LOTREL [Concomitant]

REACTIONS (11)
  - BLOOD UREA INCREASED [None]
  - COMPARTMENT SYNDROME [None]
  - CRUSH INJURY [None]
  - HAEMATURIA [None]
  - HEADACHE [None]
  - HEPATIC FUNCTION ABNORMAL [None]
  - LOCALISED OSTEOARTHRITIS [None]
  - MUSCLE INJURY [None]
  - MYALGIA [None]
  - OEDEMA PERIPHERAL [None]
  - RHABDOMYOLYSIS [None]
